FAERS Safety Report 14125893 (Version 1)
Quarter: 2017Q4

REPORT INFORMATION
  Report Type: Spontaneous
  Country: US (occurrence: US)
  Receive Date: 20171025
  Receipt Date: 20171025
  Transmission Date: 20180321
  Serious: Yes (Other)
  Sender: FDA-Public Use
  Company Number: US-ST. RENATUS-2017STR00045

PATIENT
  Age: 38 Year
  Sex: Female

DRUGS (2)
  1. KOVANAZE [Suspect]
     Active Substance: OXYMETAZOLINE HYDROCHLORIDE\TETRACAINE HYDROCHLORIDE
     Indication: DENTAL CARE
     Dosage: 2 DOSAGE UNITS, ONCE
     Dates: start: 20170823, end: 20170823
  2. UNSPECIFIED ANESTHESIA [Suspect]
     Active Substance: UNSPECIFIED INGREDIENT
     Indication: DENTAL CARE
     Dosage: UNK
     Dates: start: 20170823, end: 20170823

REACTIONS (3)
  - Drug ineffective [Recovered/Resolved]
  - Angioedema [Recovering/Resolving]
  - Hypoaesthesia [Not Recovered/Not Resolved]

NARRATIVE: CASE EVENT DATE: 20170823
